FAERS Safety Report 8605519-5 (Version None)
Quarter: 2012Q3

REPORT INFORMATION
  Report Type: 
  Country: None (occurrence: None)
  Receive Date: 20120807
  Receipt Date: 20120725
  Transmission Date: 20120928
  Serious: Yes (Hospitalization)
  Sender: FDA-Public Use
  Company Number: AXC-2012-000336

PATIENT
  Age: 21 Year
  Sex: Male

DRUGS (5)
  1. COMMON COLD MEDICINE [Suspect]
     Indication: PRODUCT USED FOR UNKNOWN INDICATION
     Dosage: ORAL
     Route: 048
  2. UARSODEOXYCHOLIC ACID (URSODEOXYCHOLIC ACID) TABLET, 50MG [Suspect]
     Indication: PRODUCT USED FOR UNKNOWN INDICATION
     Dosage: UNK, ORAL
     Route: 048
  3. ALLOPURINOL [Suspect]
     Indication: PRODUCT USED FOR UNKNOWN INDICATION
     Dosage: UNK, ORAL
     Route: 048
  4. ATORVASTATIN CALCIUM [Suspect]
     Indication: PRODUCT USED FOR UNKNOWN INDICATION
     Dosage: ORAL
     Route: 048
  5. SESDEN (TIMEPIDIUM BROMIDE) [Concomitant]

REACTIONS (5)
  - INFLUENZA A VIRUS TEST POSITIVE [None]
  - OROPHARYNGEAL PAIN [None]
  - DRUG RASH WITH EOSINOPHILIA AND SYSTEMIC SYMPTOMS [None]
  - ANAPHYLACTIC SHOCK [None]
  - HEPATIC FUNCTION ABNORMAL [None]
